FAERS Safety Report 6381475-8 (Version None)
Quarter: 2009Q3

REPORT INFORMATION
  Report Type: 
  Country: None (occurrence: None)
  Receive Date: 20090924
  Receipt Date: 20090911
  Transmission Date: 20100115
  Serious: Yes (Other)
  Sender: FDA-Public Use
  Company Number: AXC-2009-000027

PATIENT
  Age: 30 Year
  Sex: Male
  Weight: 68 kg

DRUGS (5)
  1. BENTYL [Suspect]
     Indication: GASTROOESOPHAGEAL REFLUX DISEASE
     Dosage: 20 MG, TID, ORAL ; 40 MG, TID, ORAL
     Route: 048
     Dates: start: 20080904, end: 20080916
  2. BENTYL [Suspect]
     Indication: IRRITABLE BOWEL SYNDROME
     Dosage: 20 MG, TID, ORAL ; 40 MG, TID, ORAL
     Route: 048
     Dates: start: 20080904, end: 20080916
  3. BENTYL [Suspect]
     Indication: GASTROOESOPHAGEAL REFLUX DISEASE
     Dosage: 20 MG, TID, ORAL ; 40 MG, TID, ORAL
     Route: 048
     Dates: start: 20080917, end: 20080918
  4. BENTYL [Suspect]
     Indication: IRRITABLE BOWEL SYNDROME
     Dosage: 20 MG, TID, ORAL ; 40 MG, TID, ORAL
     Route: 048
     Dates: start: 20080917, end: 20080918
  5. POTASSIUM CHLORIDE [Concomitant]

REACTIONS (4)
  - ASPHYXIA [None]
  - DYSPNOEA [None]
  - THROAT TIGHTNESS [None]
  - VENTRICULAR ARRHYTHMIA [None]
